FAERS Safety Report 5556286-3 (Version None)
Quarter: 2007Q4

REPORT INFORMATION
  Report Type: 
  Country: None (occurrence: None)
  Receive Date: 20071203
  Receipt Date: 20071120
  Transmission Date: 20080405
  Serious: Yes (Hospitalization)
  Sender: FDA-Public Use
  Company Number: B0497468A

PATIENT

DRUGS (8)
  1. AMOXICILLIN TRIHYDRATE [Suspect]
     Indication: PNEUMONIA
     Dosage: TRANSPLACENTARY
     Route: 064
  2. CEFTRIAXONE [Suspect]
     Dosage: TRANSPLACENTARY
     Route: 064
  3. AZITHROMYCIN [Suspect]
     Dosage: 250 MG / PER DAY / TRANSPLACENTARY
     Route: 064
  4. BETAMETHASONE (FORMULATION UNKNOWN) (GENERIC) (BETAMETHASONE) [Suspect]
     Dosage: TRANSPLACENTARY
     Route: 064
  5. HEPARIN [Suspect]
     Dosage: TRANSPLACENTARY
  6. LEVOFLOXACIN [Suspect]
     Dosage: TRANSPLACENTARY
     Route: 064
  7. VANCOMYCIN [Suspect]
     Dosage: 1 GRAM(S) / TRANSPLACENTARY
     Route: 064
  8. OSELTAMIVIR PHOSPHATE (FORMULATION UNKNOWN) (OSELTAMIVIR PHOSPHATE) [Suspect]
     Dosage: 75 MG / TWICE PER DAY / TRANSPLACENTARY
     Route: 064

REACTIONS (9)
  - ANAEMIA NEONATAL [None]
  - BRADYCARDIA NEONATAL [None]
  - CAESAREAN SECTION [None]
  - DRUG EXPOSURE DURING PREGNANCY [None]
  - HYDROCELE [None]
  - NEONATAL RESPIRATORY ACIDOSIS [None]
  - NEONATAL RESPIRATORY DISTRESS SYNDROME [None]
  - PREMATURE BABY [None]
  - RETINOPATHY OF PREMATURITY [None]
